FAERS Safety Report 4624043-8 (Version None)
Quarter: 2005Q1

REPORT INFORMATION
  Report Type: 
  Country: None (occurrence: None)
  Receive Date: 20050329
  Receipt Date: 20050318
  Transmission Date: 20050727
  Serious: Yes (Hospitalization)
  Sender: FDA-Public Use
  Company Number: 2005034597

PATIENT
  Age: 21 Month
  Sex: Male
  Weight: 10 kg

DRUGS (6)
  1. SOLU-MEDROL [Suspect]
     Indication: ASTHMA
     Dosage: 15 MG (5 MG, 3 IN 1 D); INTRAVENOUS
     Route: 042
     Dates: start: 20050124, end: 20050126
  2. CEFTRIAXONE SODIUM [Concomitant]
  3. CLARITHROMYCIN [Concomitant]
  4. TIPEPIDINE HIBENZATE [Concomitant]
  5. CYPROHEPTADINE HYDROCHLORIDE [Concomitant]
  6. CARBOCISTEINE [Concomitant]

REACTIONS (1)
  - HEPATOMEGALY [None]
